FAERS Safety Report 7518532-6 (Version None)
Quarter: 2011Q2

REPORT INFORMATION
  Report Type: 
  Country: None (occurrence: None)
  Receive Date: 20110602
  Receipt Date: 20110530
  Transmission Date: 20111010
  Serious: Yes (Hospitalization)
  Sender: FDA-Public Use
  Company Number: ES-ABBOTT-11P-144-0728935-00

PATIENT
  Age: 39 Year
  Sex: Male

DRUGS (2)
  1. EBASTINA (EBASTEL FORTE) [Concomitant]
     Indication: PUSTULAR PSORIASIS
     Route: 048
     Dates: start: 20100406, end: 20101220
  2. HUMIRA [Suspect]
     Indication: PSORIATIC ARTHROPATHY
     Route: 058
     Dates: start: 20101109, end: 20101220

REACTIONS (6)
  - PYREXIA [None]
  - SPUTUM PURULENT [None]
  - EPISTAXIS [None]
  - LUNG NEOPLASM [None]
  - WEGENER'S GRANULOMATOSIS [None]
  - COUGH [None]
